FAERS Safety Report 6159162-0 (Version None)
Quarter: 2009Q2

REPORT INFORMATION
  Report Type: 
  Country: None (occurrence: None)
  Receive Date: 20090417
  Receipt Date: 20090415
  Transmission Date: 20091009
  Serious: Yes (Hospitalization)
  Sender: FDA-Public Use
  Company Number: AU-ROXANE LABORATORIES, INC.-2009-RO-00379RO

PATIENT
  Sex: Female
  Weight: 221 kg

DRUGS (13)
  1. MORPHINE [Suspect]
     Dosage: 200MCG
     Route: 037
  2. FENTANYL [Suspect]
     Dosage: 20MCG
     Route: 037
  3. BUPIVACAINE [Suspect]
     Indication: ANALGESIA
     Dosage: 10MG
  4. BUPIVACAINE [Suspect]
     Route: 008
  5. CLONIDINE [Suspect]
     Dosage: 60MCG
     Route: 037
  6. PHENYLEPHRINE [Suspect]
     Indication: HAEMODYNAMIC INSTABILITY
  7. PHENYLEPHRINE [Suspect]
     Indication: VASOPRESSIVE THERAPY
  8. LEVOBUPIVACAINE [Concomitant]
     Indication: ANALGESIA
     Route: 008
  9. MEPERIDINE HCL [Concomitant]
     Indication: ANALGESIA
     Route: 008
  10. PARACETAMOL [Concomitant]
     Indication: ANALGESIA
  11. IBUPROFEN [Concomitant]
     Indication: ANALGESIA
  12. ENOXAPARIN SODIUM [Concomitant]
     Indication: THROMBOSIS PROPHYLAXIS
     Dosage: 80MG
  13. CO-AMOXYCLAV [Concomitant]
     Indication: INFECTION PROPHYLAXIS
     Route: 048

REACTIONS (1)
  - INCISIONAL HERNIA [None]
